FAERS Safety Report 10838567 (Version 1)
Quarter: 2015Q1

REPORT INFORMATION
  Report Type: Spontaneous
  Country: US (occurrence: None)
  Receive Date: 20150218
  Receipt Date: 20150218
  Transmission Date: 20150721
  Serious: Yes (Hospitalization)
  Sender: FDA-Public Use
  Company Number: 201502069

PATIENT
  Age: 62 Year
  Sex: Male

DRUGS (2)
  1. TESTIM [Suspect]
     Active Substance: TESTOSTERONE
     Indication: BLOOD TESTOSTERONE DECREASED
     Route: 062
     Dates: start: 20110922, end: 20120301
  2. ANDROGEL [Suspect]
     Active Substance: TESTOSTERONE
     Indication: BLOOD TESTOSTERONE DECREASED
     Dates: start: 20120601, end: 20130211

REACTIONS (7)
  - Myocardial infarction [None]
  - Fear [None]
  - Anhedonia [None]
  - Anxiety [None]
  - Impaired work ability [None]
  - Pain [None]
  - Economic problem [None]

NARRATIVE: CASE EVENT DATE: 20130211
